FAERS Safety Report 4745122-0 (Version None)
Quarter: 2005Q3

REPORT INFORMATION
  Report Type: 
  Country: None (occurrence: None)
  Receive Date: 20050815
  Receipt Date: 20050331
  Transmission Date: 20060218
  Serious: Yes (Other)
  Sender: FDA-Public Use
  Company Number: US-ROCHE-400695

PATIENT
  Age: 48 Year
  Sex: Male
  Weight: 86.2 kg

DRUGS (5)
  1. PEGASYS [Suspect]
     Indication: HEPATITIS C
     Dosage: STRENGTH REPORTED AS 180 MCG/0.5 ML
     Route: 058
     Dates: start: 20050310
  2. COPEGUS [Suspect]
     Indication: HEPATITIS C
     Route: 048
     Dates: start: 20050310
  3. LIDOCAINE [Suspect]
     Indication: ANAESTHESIA
     Route: 065
     Dates: start: 20050330, end: 20050330
  4. LANTUS [Concomitant]
     Route: 058
  5. ULTRAM [Concomitant]
     Dates: start: 20050401

REACTIONS (18)
  - ANXIETY [None]
  - BLOOD GLUCOSE INCREASED [None]
  - BLOOD PRESSURE DECREASED [None]
  - BONE PAIN [None]
  - CHILLS [None]
  - CONFUSIONAL STATE [None]
  - DIZZINESS [None]
  - DYSPNOEA [None]
  - FATIGUE [None]
  - HEART RATE DECREASED [None]
  - INSOMNIA [None]
  - LIVER FUNCTION TEST ABNORMAL [None]
  - LYMPHOCYTE COUNT INCREASED [None]
  - MEMORY IMPAIRMENT [None]
  - MYALGIA [None]
  - NAUSEA [None]
  - PLATELET COUNT DECREASED [None]
  - SHOULDER PAIN [None]
